FAERS Safety Report 10178184 (Version 1)
Quarter: 2014Q2

REPORT INFORMATION
  Report Type: Spontaneous
  Country: CA (occurrence: CA)
  Receive Date: 20140519
  Receipt Date: 20140519
  Transmission Date: 20141212
  Serious: Yes (Other)
  Sender: FDA-Public Use
  Company Number: CA-009507513-1405CAN007438

PATIENT
  Age: 60 Year
  Sex: Male
  Weight: 106 kg

DRUGS (7)
  1. VICTRELIS [Suspect]
     Dosage: 800 MG, 3 EVERY 1 DAY
     Route: 048
  2. PEGASYS [Suspect]
     Dosage: 180 UCI
     Route: 058
  3. RIBAVIRIN [Suspect]
     Dosage: 1400 MG,
     Route: 048
  4. BUPROPION HYDROCHLORIDE [Concomitant]
     Route: 065
  5. PAROXETINE [Concomitant]
     Route: 065
  6. QUETIAPINE FUMARATE [Concomitant]
     Route: 065
  7. VALPROIC ACID [Concomitant]
     Route: 065

REACTIONS (9)
  - Aspartate aminotransferase increased [Recovered/Resolved]
  - Blood albumin decreased [Recovered/Resolved]
  - Blood bilirubin increased [Recovered/Resolved]
  - Delirium [Recovered/Resolved]
  - Haemoglobin decreased [Recovered/Resolved]
  - International normalised ratio increased [Recovered/Resolved]
  - Neutrophil count increased [Recovered/Resolved]
  - Platelet count decreased [Recovered/Resolved]
  - White blood cell count decreased [Recovered/Resolved]
